FAERS Safety Report 14777226 (Version 3)
Quarter: 2018Q4

REPORT INFORMATION
  Report Type: Report from Study
  Country: None (occurrence: BR)
  Receive Date: 20180419
  Receipt Date: 20181216
  Transmission Date: 20190204
  Serious: Yes (Other)
  Sender: FDA-Public Use
  Company Number: BR-ABBVIE-18K-020-2326438-00

PATIENT
  Age: 38 Year
  Sex: Female
  Weight: 78 kg

DRUGS (10)
  1. ADDERA D3 [Concomitant]
     Active Substance: CHOLECALCIFEROL
     Route: 048
  2. COSENTYX [Concomitant]
     Active Substance: SECUKINUMAB
     Indication: PRODUCT USED FOR UNKNOWN INDICATION
     Dosage: 2 SYRINGES OF 300ML AND 2 TWO SYRINGES IN A MONTH AS THE ONLY DOSE
     Dates: end: 20180924
  3. METHOTREXATE. [Suspect]
     Active Substance: METHOTREXATE
     Indication: PSORIATIC ARTHROPATHY
     Route: 048
     Dates: start: 2014
  4. HUMIRA [Suspect]
     Active Substance: ADALIMUMAB
     Indication: PSORIATIC ARTHROPATHY
     Route: 058
     Dates: start: 201601
  5. ADDERA D3 [Concomitant]
     Active Substance: CHOLECALCIFEROL
     Indication: VITAMIN SUPPLEMENTATION
     Route: 048
     Dates: start: 2016
  6. HUMIRA [Suspect]
     Active Substance: ADALIMUMAB
     Route: 058
     Dates: end: 201804
  7. HUMIRA [Suspect]
     Active Substance: ADALIMUMAB
     Route: 058
     Dates: start: 2018, end: 20180924
  8. METHOTREXATE. [Suspect]
     Active Substance: METHOTREXATE
     Indication: PSORIASIS
     Route: 048
     Dates: start: 2017, end: 201801
  9. METHOTREXATE. [Suspect]
     Active Substance: METHOTREXATE
     Route: 048
     Dates: start: 2018, end: 201804
  10. ADDERA D3 [Concomitant]
     Active Substance: CHOLECALCIFEROL
     Route: 048

REACTIONS (11)
  - Product storage error [Unknown]
  - Product dispensing error [Unknown]
  - Psoriasis [Unknown]
  - Hypothyroidism [Unknown]
  - Drug-induced liver injury [Unknown]
  - Hyperthyroidism [Recovered/Resolved]
  - Alanine aminotransferase abnormal [Unknown]
  - Liver disorder [Recovered/Resolved]
  - Vitamin D decreased [Unknown]
  - Psoriatic arthropathy [Recovered/Resolved]
  - Drug ineffective [Recovered/Resolved]

NARRATIVE: CASE EVENT DATE: 20171212
